FAERS Safety Report 5935787-X (Version None)
Quarter: 2008Q4

REPORT INFORMATION
  Report Type: 
  Country: None (occurrence: None)
  Receive Date: 20081030
  Receipt Date: 20081021
  Transmission Date: 20090506
  Serious: Yes (Other)
  Sender: FDA-Public Use
  Company Number: PHHY2008FR25408

PATIENT
  Age: 60 Year
  Sex: Female

DRUGS (1)
  1. CARTEOLOL HYDROCHLORIDE [Suspect]
     Dosage: UNK

REACTIONS (2)
  - LIVER DISORDER [None]
  - SYSTEMIC LUPUS ERYTHEMATOSUS [None]
